FAERS Safety Report 4758086-0 (Version None)
Quarter: 2005Q3

REPORT INFORMATION
  Report Type: 
  Country: None (occurrence: None)
  Receive Date: 20050831
  Receipt Date: 20050714
  Transmission Date: 20060218
  Serious: Yes (Death, Disabling)
  Sender: FDA-Public Use
  Company Number: IE-MERCK-0507GBR00149

PATIENT
  Age: 73 Year
  Sex: Male

DRUGS (10)
  1. DECADRON [Suspect]
     Indication: SPINAL CORD COMPRESSION
     Route: 048
  2. DICLOFENAC [Concomitant]
     Indication: PAIN
     Route: 065
  3. MORPHINE [Concomitant]
     Indication: PAIN
     Route: 065
  4. LACTULOSE [Concomitant]
     Indication: CONSTIPATION
     Route: 065
  5. MAGNESIUM HYDROXIDE AND MINERAL OIL [Concomitant]
     Indication: CONSTIPATION
     Route: 065
  6. OMEPRAZOLE [Concomitant]
     Indication: GASTRIC DISORDER
     Route: 065
  7. FUROSEMIDE [Concomitant]
     Route: 065
  8. CYCLIZINE [Concomitant]
     Route: 065
  9. HALOPERIDOL [Concomitant]
     Route: 065
  10. METOCLOPRAMIDE [Concomitant]
     Route: 065

REACTIONS (2)
  - PROSTATE CANCER [None]
  - TENDON RUPTURE [None]
